FAERS Safety Report 14996347 (Version 1)
Quarter: 2018Q2

REPORT INFORMATION
  Report Type: Spontaneous
  Country: US (occurrence: US)
  Receive Date: 20180611
  Receipt Date: 20180611
  Transmission Date: 20180711
  Serious: Yes (Other)
  Sender: FDA-Public Use
  Company Number: US-PFIZER INC-2018234531

PATIENT
  Sex: Male

DRUGS (2)
  1. LORTAB [Suspect]
     Active Substance: ACETAMINOPHEN\HYDROCODONE BITARTRATE
     Indication: PAIN
     Dosage: UNK, DAILY [10S]
  2. GABAPENTIN. [Suspect]
     Active Substance: GABAPENTIN
     Indication: PAIN
     Dosage: UNK [FOUR GABAPENTIN 800S]

REACTIONS (7)
  - Memory impairment [Unknown]
  - Walking aid user [Recovered/Resolved]
  - Drug ineffective for unapproved indication [Unknown]
  - Drug dependence [Unknown]
  - Ulcer [Unknown]
  - Loss of consciousness [Unknown]
  - Paraesthesia [Unknown]
